FAERS Safety Report 6704002-1 (Version None)
Quarter: 2010Q2

REPORT INFORMATION
  Report Type: 
  Country: None (occurrence: None)
  Receive Date: 20100428
  Receipt Date: 20100120
  Transmission Date: 20101027
  Serious: Yes (Other)
  Sender: FDA-Public Use
  Company Number: AMI0017503

PATIENT
  Age: 68 Year
  Sex: Male

DRUGS (3)
  1. TIMOLOL MALEATE [Suspect]
     Indication: GLAUCOMA
     Dosage: 2 DROPS QD - 046
     Dates: start: 20070301
  2. PREDNISOLONE [Concomitant]
  3. DORZOLAMIDE HYDROCHLORIDE [Concomitant]

REACTIONS (5)
  - ALOPECIA [None]
  - DEAFNESS UNILATERAL [None]
  - OEDEMA PERIPHERAL [None]
  - PRURITUS [None]
  - TINNITUS [None]
